FAERS Safety Report 5936681-0 (Version None)
Quarter: 2008Q4

REPORT INFORMATION
  Report Type: 
  Country: None (occurrence: None)
  Receive Date: 20081021
  Receipt Date: 20070810
  Transmission Date: 20090506
  Serious: No
  Sender: FDA-Public Use
  Company Number: HQWYE923606JUL07

PATIENT
  Age: 62 Year
  Sex: Female
  Weight: 44.49 kg

DRUGS (1)
  1. PREMARIN [Suspect]
     Indication: HORMONE REPLACEMENT THERAPY
     Dosage: 0.625 MG 1X PER 1 DAY, ORAL
     Route: 048
     Dates: start: 20040101

REACTIONS (3)
  - DYSGEUSIA [None]
  - DYSPHAGIA [None]
  - PRODUCT QUALITY ISSUE [None]
